FAERS Safety Report 6654423-0 (Version None)
Quarter: 2010Q1

REPORT INFORMATION
  Report Type: 
  Country: None (occurrence: None)
  Receive Date: 20100326
  Receipt Date: 20100319
  Transmission Date: 20100710
  Serious: Yes (Hospitalization)
  Sender: FDA-Public Use
  Company Number: US-AMGEN-QUU373090

PATIENT
  Sex: Male
  Weight: 74.9 kg

DRUGS (7)
  1. ENBREL [Suspect]
     Indication: PSORIATIC ARTHROPATHY
     Route: 058
     Dates: start: 20020101
  2. ENBREL [Suspect]
     Indication: PSORIASIS
  3. LOVASTATIN [Concomitant]
  4. NEXIUM [Concomitant]
  5. VISTARIL [Concomitant]
  6. HYTRIN [Concomitant]
  7. NIASPAN [Concomitant]

REACTIONS (7)
  - ABDOMINAL PAIN [None]
  - CHILLS [None]
  - DEHYDRATION [None]
  - FLUSHING [None]
  - NAUSEA [None]
  - PYREXIA [None]
  - VOMITING [None]
